FAERS Safety Report 7429033-8 (Version None)
Quarter: 2011Q2

REPORT INFORMATION
  Report Type: 
  Country: None (occurrence: None)
  Receive Date: 20110421
  Receipt Date: 20110413
  Transmission Date: 20111010
  Serious: Yes (Hospitalization)
  Sender: FDA-Public Use
  Company Number: JP-ROCHE-760995

PATIENT
  Sex: Female
  Weight: 52 kg

DRUGS (6)
  1. CORTRIL [Concomitant]
     Route: 048
     Dates: start: 20081101
  2. ROCEPHIN [Suspect]
     Indication: MENINGITIS
     Dosage: ROUTE: INTRAVENOUS (NOS)
     Route: 042
     Dates: start: 20101207, end: 20101223
  3. DESMOPRESSIN ACETATE [Concomitant]
     Dosage: DOSEFORM: UNCERTAINITY
     Dates: start: 20081101
  4. MUCODYNE [Concomitant]
     Route: 048
     Dates: start: 20101220, end: 20110130
  5. THYRADIN S [Concomitant]
     Route: 048
     Dates: start: 20101208
  6. ROCEPHIN [Suspect]
     Route: 042
     Dates: start: 20110106, end: 20110119

REACTIONS (2)
  - CHOLELITHIASIS [None]
  - CHOLECYSTITIS [None]
